FAERS Safety Report 24019819 (Version 1)
Quarter: 2024Q2

REPORT INFORMATION
  Report Type: Spontaneous
  Country: US (occurrence: None)
  Receive Date: 20240627
  Receipt Date: 20240627
  Transmission Date: 20240716
  Serious: Yes (Hospitalization)
  Sender: FDA-Public Use
  Company Number: None

PATIENT
  Age: 72 Year
  Sex: Male
  Weight: 76 kg

DRUGS (1)
  1. CISPLATIN [Suspect]
     Active Substance: CISPLATIN
     Dates: end: 20240611

REACTIONS (10)
  - Hypophagia [None]
  - Weight decreased [None]
  - White blood cell count decreased [None]
  - Platelet count decreased [None]
  - Blood urea increased [None]
  - Troponin increased [None]
  - Gastritis [None]
  - Oesophagitis [None]
  - Blood pressure increased [None]
  - Diastolic dysfunction [None]

NARRATIVE: CASE EVENT DATE: 20240624
